FAERS Safety Report 18271054 (Version 2)
Quarter: 2020Q3

REPORT INFORMATION
  Report Type: Spontaneous
  Country: US (occurrence: US)
  Receive Date: 20200915
  Receipt Date: 20200916
  Transmission Date: 20201103
  Serious: Yes (Other)
  Sender: FDA-Public Use
  Company Number: US-CELGENEUS-USA-20200902449

PATIENT
  Age: 80 Year
  Weight: 90.7 kg

DRUGS (3)
  1. ELIQUIS [Concomitant]
     Active Substance: APIXABAN
     Indication: PRODUCT USED FOR UNKNOWN INDICATION
     Route: 048
  2. THALOMID [Suspect]
     Active Substance: THALIDOMIDE
     Indication: OFF LABEL USE
  3. THALOMID [Suspect]
     Active Substance: THALIDOMIDE
     Indication: SMALL INTESTINAL HAEMORRHAGE
     Route: 048
     Dates: start: 20200206

REACTIONS (5)
  - Lethargy [Unknown]
  - Aortic valve disease [Unknown]
  - Fatigue [Unknown]
  - Anaemia [Unknown]
  - Haematocrit increased [Unknown]

NARRATIVE: CASE EVENT DATE: 2020
